FAERS Safety Report 8639297 (Version 3)
Quarter: 2013Q1

REPORT INFORMATION
  Report Type: Spontaneous
  Country: US (occurrence: None)
  Receive Date: 20120614
  Receipt Date: 20121026
  Transmission Date: 20140127
  Serious: Yes (Other)
  Sender: FDA-Public Use
  Company Number: JPI-P-019364

PATIENT
  Age: 33 Year
  Sex: Female
  Weight: 142.88 kg

DRUGS (27)
  1. XYREM [Suspect]
     Indication: CATAPLEXY
     Dosage: (3 GM,2 IN 1 D)
     Route: 048
     Dates: start: 20080623
  2. CLINDAMYCIN [Suspect]
     Indication: BRONCHITIS
     Dates: start: 201109
  3. TOPAMAX [Suspect]
     Indication: MIGRAINE
     Dates: start: 2011
  4. INDERAL [Suspect]
     Indication: MIGRAINE
     Dates: start: 201110
  5. AMERGE [Concomitant]
  6. ADVAIR (FLUTICASONE W/SALMETEROL) [Concomitant]
  7. ZANTAC [Concomitant]
  8. PROVIGIL [Concomitant]
  9. DEXTRO-STAT (DEXTROAMPHETAMINE) [Concomitant]
  10. VENLAFAXINE [Concomitant]
  11. ZYRTEC [Concomitant]
  12. REQUIP [Concomitant]
  13. PERCOCET (OXYCODONE W/ ACETAMINOPHEN) [Concomitant]
  14. VERAMYST (FLUTICASONE) [Concomitant]
  15. SIMVASTATIN [Concomitant]
  16. NEXIUM [Concomitant]
  17. METFORMIN HYDROCHLORIDE [Concomitant]
  18. GEODON [Concomitant]
  19. SYNTHROID [Concomitant]
  20. SINGULAIR [Concomitant]
  21. REGLAN [Concomitant]
  22. COMPAZINE [Concomitant]
  23. CETIRIZINE [Concomitant]
  24. MOMETASONE/FORMOTEROL [Concomitant]
  25. CLONAZEPAM [Concomitant]
  26. ONDANSETRON (ZOFRAN) [Concomitant]
  27. DOMPERIDONE [Concomitant]

REACTIONS (24)
  - Drug hypersensitivity [None]
  - Dyspnoea [None]
  - Urticaria [None]
  - Migraine [None]
  - Food allergy [None]
  - Bronchitis [None]
  - Gastric disorder [None]
  - Nausea [None]
  - Vomiting [None]
  - Paraesthesia [None]
  - Flushing [None]
  - Hyperhidrosis [None]
  - Condition aggravated [None]
  - Therapeutic response decreased [None]
  - Parasomnia [None]
  - Weight increased [None]
  - Food craving [None]
  - Depression [None]
  - Initial insomnia [None]
  - Feeling abnormal [None]
  - Piloerection [None]
  - CSF volume increased [None]
  - Multiple allergies [None]
  - Feeling hot [None]
